FAERS Safety Report 23568432 (Version 1)
Quarter: 2024Q1

REPORT INFORMATION
  Report Type: Spontaneous
  Country: US (occurrence: US)
  Receive Date: 20240227
  Receipt Date: 20240227
  Transmission Date: 20240410
  Serious: No
  Sender: FDA-Public Use
  Company Number: US-ELI_LILLY_AND_COMPANY-US202402013622

PATIENT
  Age: 24 Year
  Sex: Male

DRUGS (4)
  1. ZEPBOUND [Suspect]
     Active Substance: TIRZEPATIDE
     Indication: Body mass index increased
     Dosage: 2.5 MG, UNKNOWN
     Route: 065
     Dates: start: 20240221
  2. ZEPBOUND [Suspect]
     Active Substance: TIRZEPATIDE
     Indication: Body mass index increased
     Dosage: 2.5 MG, UNKNOWN
     Route: 065
     Dates: start: 20240221
  3. ZEPBOUND [Suspect]
     Active Substance: TIRZEPATIDE
     Indication: Body mass index increased
     Dosage: 2.5 MG, UNKNOWN
     Route: 065
     Dates: start: 20240221
  4. ZEPBOUND [Suspect]
     Active Substance: TIRZEPATIDE
     Indication: Body mass index increased
     Dosage: 2.5 MG, UNKNOWN
     Route: 065
     Dates: start: 20240221

REACTIONS (2)
  - Paraesthesia [Unknown]
  - Hypoaesthesia [Unknown]

NARRATIVE: CASE EVENT DATE: 20240222
